FAERS Safety Report 7985877 (Version 3)
Quarter: 2014Q4

REPORT INFORMATION
  Report Type: Spontaneous
  Country: AU (occurrence: AU)
  Receive Date: 20110610
  Receipt Date: 20141112
  Transmission Date: 20150529
  Serious: Yes (Death, Disabling, Other)
  Sender: FDA-Public Use
  Company Number: AU-ACTELION-A-CH2011-48098

PATIENT
  Age: 35 Year
  Sex: Male

DRUGS (1)
  1. ZAVESCA [Suspect]
     Active Substance: MIGLUSTAT
     Indication: NIEMANN-PICK DISEASE
     Dosage: 200 MG, TID
     Route: 048
     Dates: start: 20080123, end: 20120630

REACTIONS (7)
  - Disease progression [Unknown]
  - Palliative care [Unknown]
  - Ataxia [Unknown]
  - Dysphagia [Unknown]
  - Respiratory failure [Fatal]
  - Aspiration [Fatal]
  - Niemann-Pick disease [Unknown]
